FAERS Safety Report 9788054 (Version 1)
Quarter: 2013Q4

REPORT INFORMATION
  Report Type: Spontaneous
  Country: US (occurrence: None)
  Receive Date: 20131227
  Receipt Date: 20131227
  Transmission Date: 20140711
  Serious: Yes (Hospitalization)
  Sender: FDA-Public Use
  Company Number: None

PATIENT
  Age: 84 Year
  Sex: Female
  Weight: 100.61 kg

DRUGS (11)
  1. METHOTREXATE [Suspect]
     Indication: RHEUMATOID ARTHRITIS
     Dosage: Q SATURDAY??CHRONIC
     Route: 048
  2. VIT D [Concomitant]
  3. ZESTRIL [Concomitant]
  4. CARVEDILOL [Concomitant]
  5. SINGULAIR [Concomitant]
  6. ASA [Concomitant]
  7. METHOTREXATE [Concomitant]
  8. FOLIC ACID [Concomitant]
  9. CALCIUM CARBONATE [Concomitant]
  10. FISH OIL [Concomitant]
  11. FERROUS SULFATE [Concomitant]

REACTIONS (13)
  - Pancytopenia [None]
  - Toxicity to various agents [None]
  - Hypophagia [None]
  - Fluid intake reduced [None]
  - Renal failure acute [None]
  - Acute respiratory failure [None]
  - Pneumonia [None]
  - Pneumonia aspiration [None]
  - Opportunistic infection [None]
  - Lung infection [None]
  - Mouth ulceration [None]
  - Mucosal ulceration [None]
  - Mucosal inflammation [None]
